FAERS Safety Report 24618953 (Version 3)
Quarter: 2024Q4

REPORT INFORMATION
  Report Type: Spontaneous
  Country: FR (occurrence: FR)
  Receive Date: 20241114
  Receipt Date: 20241206
  Transmission Date: 20250115
  Serious: Yes (Disabling)
  Sender: BLUEPRINT MEDICINES
  Company Number: FR-Blueprint Medicines Corporation-SP-FR-2024-002289

PATIENT
  Age: 53 Year
  Sex: Female
  Weight: 54 kg

DRUGS (2)
  1. AVAPRITINIB [Suspect]
     Active Substance: AVAPRITINIB
     Indication: Advanced systemic mastocytosis
     Route: 048
     Dates: start: 20240903, end: 20241104
  2. AVAPRITINIB [Suspect]
     Active Substance: AVAPRITINIB
     Route: 048
     Dates: start: 20241104

REACTIONS (6)
  - Eye oedema [Recovering/Resolving]
  - Tremor [Unknown]
  - Hypoaesthesia [Unknown]
  - Hypoaesthesia oral [Unknown]
  - Periorbital oedema [Unknown]
  - Ocular icterus [Unknown]

NARRATIVE: CASE EVENT DATE: 20241011
